FAERS Safety Report 22311106 (Version 1)
Quarter: 2023Q2

REPORT INFORMATION
  Report Type: Spontaneous
  Country: US (occurrence: US)
  Receive Date: 20230511
  Receipt Date: 20230511
  Transmission Date: 20230721
  Serious: Yes (Death)
  Sender: FDA-Public Use
  Company Number: US-AMGEN-USASP2023078167

PATIENT
  Sex: Male

DRUGS (20)
  1. RITUXIMAB [Suspect]
     Active Substance: RITUXIMAB
     Indication: VEXAS syndrome
     Dosage: UNK
     Route: 065
  2. INFLIXIMAB [Suspect]
     Active Substance: INFLIXIMAB
     Indication: VEXAS syndrome
     Dosage: UNK
     Route: 065
  3. ETANERCEPT [Suspect]
     Active Substance: ETANERCEPT
     Indication: VEXAS syndrome
     Dosage: UNK
     Route: 065
  4. METHOTREXATE [Concomitant]
     Active Substance: METHOTREXATE
     Indication: VEXAS syndrome
     Dosage: UNK
  5. AZATHIOPRINE [Concomitant]
     Active Substance: AZATHIOPRINE
     Indication: VEXAS syndrome
     Dosage: UNK
  6. MYCOPHENOLATE MOFETIL [Concomitant]
     Active Substance: MYCOPHENOLATE MOFETIL
     Indication: VEXAS syndrome
     Dosage: UNK
  7. LEFLUNOMIDE [Concomitant]
     Active Substance: LEFLUNOMIDE
     Indication: VEXAS syndrome
     Dosage: UNK
  8. CYCLOSPORINE [Concomitant]
     Active Substance: CYCLOSPORINE
     Indication: VEXAS syndrome
     Dosage: UNK
  9. HYDROXYCHLOROQUINE [Concomitant]
     Active Substance: HYDROXYCHLOROQUINE
     Indication: VEXAS syndrome
     Dosage: UNK
  10. TOCILIZUMAB [Concomitant]
     Active Substance: TOCILIZUMAB
     Indication: VEXAS syndrome
     Dosage: UNK
  11. ADALIMUMAB [Concomitant]
     Active Substance: ADALIMUMAB
     Indication: VEXAS syndrome
     Dosage: UNK
  12. GOLIMUMAB [Concomitant]
     Active Substance: GOLIMUMAB
     Indication: VEXAS syndrome
     Dosage: UNK
  13. ABATACEPT [Concomitant]
     Active Substance: ABATACEPT
     Indication: VEXAS syndrome
     Dosage: UNK
  14. ANAKINRA [Concomitant]
     Active Substance: ANAKINRA
     Indication: VEXAS syndrome
     Dosage: UNK
  15. TOFACITINIB [Concomitant]
     Active Substance: TOFACITINIB
     Indication: VEXAS syndrome
     Dosage: UNK
  16. BARICITINIB [Concomitant]
     Active Substance: BARICITINIB
     Indication: VEXAS syndrome
     Dosage: UNK
  17. UPADACITINIB [Concomitant]
     Active Substance: UPADACITINIB
     Indication: VEXAS syndrome
     Dosage: UNK
  18. RUXOLITINIB [Concomitant]
     Active Substance: RUXOLITINIB
     Indication: VEXAS syndrome
     Dosage: UNK
  19. PREDNISONE [Concomitant]
     Active Substance: PREDNISONE
     Indication: VEXAS syndrome
     Dosage: 10-60 MILLIGRAM
     Route: 065
  20. AZACITIDINE [Concomitant]
     Active Substance: AZACITIDINE
     Indication: VEXAS syndrome
     Dosage: UNK

REACTIONS (7)
  - COVID-19 pneumonia [Fatal]
  - Death [Fatal]
  - Pneumonia bacterial [Fatal]
  - Cardiac failure [Fatal]
  - Sepsis [Fatal]
  - VEXAS syndrome [Unknown]
  - Off label use [Unknown]
